FAERS Safety Report 13339521 (Version 2)
Quarter: 2017Q1

REPORT INFORMATION
  Report Type: Spontaneous
  Country: CR (occurrence: CR)
  Receive Date: 20170315
  Receipt Date: 20170324
  Transmission Date: 20170428
  Serious: Yes (Other)
  Sender: FDA-Public Use
  Company Number: CR-ACTELION-A-NJ2017-151153

PATIENT
  Age: 28 Year
  Sex: Female

DRUGS (11)
  1. CALCIUM [Concomitant]
     Active Substance: CALCIUM
  2. VIAGRA [Concomitant]
     Active Substance: SILDENAFIL CITRATE
  3. ACETYLSALICYLIC ACID [Concomitant]
     Active Substance: ASPIRIN
  4. PLAQUINOL [Concomitant]
     Active Substance: HYDROXYCHLOROQUINE SULFATE
  5. ATROVENT [Concomitant]
     Active Substance: IPRATROPIUM BROMIDE
  6. FLIXOTIDE [Concomitant]
     Active Substance: FLUTICASONE PROPIONATE
  7. LORATADINE. [Concomitant]
     Active Substance: LORATADINE
  8. VENTAVIS [Suspect]
     Active Substance: ILOPROST
     Indication: PULMONARY HYPERTENSION
     Dosage: UNK
     Route: 055
     Dates: start: 20170101
  9. ANTITHROMBOTIC AGENTS [Concomitant]
     Active Substance: UNSPECIFIED INGREDIENT
  10. FOLIC ACID. [Concomitant]
     Active Substance: FOLIC ACID
  11. IRON [Concomitant]
     Active Substance: IRON

REACTIONS (3)
  - Premature delivery [Unknown]
  - Exposure during pregnancy [Recovered/Resolved]
  - Caesarean section [Unknown]

NARRATIVE: CASE EVENT DATE: 2017
